FAERS Safety Report 5411665-X (Version None)
Quarter: 2007Q3

REPORT INFORMATION
  Report Type: 
  Country: None (occurrence: None)
  Receive Date: 20070810
  Receipt Date: 20070808
  Transmission Date: 20080115
  Serious: Yes (Other)
  Sender: FDA-Public Use
  Company Number: GB-MERCK-0706GBR00052

PATIENT
  Sex: Male
  Weight: 90 kg

DRUGS (7)
  1. ZETIA [Suspect]
     Indication: HYPERLIPIDAEMIA
     Route: 048
     Dates: start: 20050527, end: 20070201
  2. ATORVASTATIN [Concomitant]
     Route: 048
     Dates: start: 20070626
  3. DESLORATADINE [Concomitant]
     Route: 048
     Dates: start: 20070626
  4. ASPIRIN [Concomitant]
     Route: 048
     Dates: start: 20070109
  5. CAPTOPRIL [Concomitant]
     Route: 048
     Dates: start: 20070626
  6. VERAPAMIL [Concomitant]
     Route: 048
     Dates: start: 20070626
  7. ACETAMINOPHEN AND CODEINE PHOSPHATE [Concomitant]
     Route: 048
     Dates: start: 20070626

REACTIONS (2)
  - RESPIRATORY DISORDER [None]
  - SWOLLEN TONGUE [None]
